FAERS Safety Report 11335265 (Version 2)
Quarter: 2015Q3

REPORT INFORMATION
  Report Type: Spontaneous
  Country: DK (occurrence: DK)
  Receive Date: 20150804
  Receipt Date: 20150914
  Transmission Date: 20151125
  Serious: Yes (Hospitalization, Other)
  Sender: FDA-Public Use
  Company Number: DK-BIOGENIDEC-2015BI103045

PATIENT
  Age: 26 Year
  Sex: Male

DRUGS (3)
  1. CIMZIA [Concomitant]
     Active Substance: CERTOLIZUMAB PEGOL
  2. IMUREL [Concomitant]
     Active Substance: AZATHIOPRINE SODIUM
  3. TYSABRI [Suspect]
     Active Substance: NATALIZUMAB
     Indication: CROHN^S DISEASE
     Route: 042
     Dates: start: 2013

REACTIONS (5)
  - Epstein-Barr virus infection [Unknown]
  - Intentional product use issue [Unknown]
  - Hodgkin^s disease [Unknown]
  - Histiocytosis haematophagic [Unknown]
  - Infertility [Unknown]

NARRATIVE: CASE EVENT DATE: 2013
